FAERS Safety Report 5915041-2 (Version None)
Quarter: 2008Q4

REPORT INFORMATION
  Report Type: 
  Country: None (occurrence: None)
  Receive Date: 20081010
  Receipt Date: 20081004
  Transmission Date: 20090506
  Serious: Yes (Hospitalization)
  Sender: FDA-Public Use
  Company Number: US-GILEAD-2008-0018442

PATIENT
  Sex: Female
  Weight: 37.682 kg

DRUGS (10)
  1. LETAIRIS [Suspect]
     Route: 048
     Dates: start: 20071116
  2. FLOLAN [Concomitant]
  3. DIGOXIN [Concomitant]
  4. VIAGRA [Concomitant]
  5. SPIRONOLACTONE [Concomitant]
  6. COUMADIN [Concomitant]
  7. LASIX [Concomitant]
  8. TIMOLOL MALEATE [Concomitant]
  9. XALATAN [Concomitant]
  10. KLOR-CON M20 [Concomitant]

REACTIONS (1)
  - BLOOD POTASSIUM DECREASED [None]
